FAERS Safety Report 10983209 (Version 1)
Quarter: 2015Q2

REPORT INFORMATION
  Report Type: Spontaneous
  Country: US (occurrence: None)
  Receive Date: 20150402
  Receipt Date: 20150402
  Transmission Date: 20150821
  Serious: Yes (Other)
  Sender: FDA-Public Use
  Company Number: None

PATIENT
  Age: 29 Year
  Sex: Female
  Weight: 61.69 kg

DRUGS (1)
  1. INAPSINE [Suspect]
     Active Substance: DROPERIDOL
     Indication: NAUSEA

REACTIONS (4)
  - Musculoskeletal pain [None]
  - Neck pain [None]
  - Back pain [None]
  - Musculoskeletal stiffness [None]

NARRATIVE: CASE EVENT DATE: 20150314
